FAERS Safety Report 10161630 (Version 1)
Quarter: 2014Q2

REPORT INFORMATION
  Report Type: Spontaneous
  Country: ES (occurrence: ES)
  Receive Date: 20140509
  Receipt Date: 20140509
  Transmission Date: 20141212
  Serious: Yes (Hospitalization)
  Sender: FDA-Public Use
  Company Number: ES-ROCHE-1391518

PATIENT
  Age: 70 Year
  Sex: Male
  Weight: 55 kg

DRUGS (10)
  1. XELODA [Suspect]
     Indication: RECTAL CANCER STAGE III
     Route: 048
     Dates: start: 20131220, end: 20140214
  2. EUTIROX [Concomitant]
     Indication: POST PROCEDURAL HYPOTHYROIDISM
     Route: 048
  3. IBERCAL [Concomitant]
     Route: 048
  4. SERC (SPAIN) [Concomitant]
     Route: 048
  5. KILOR [Concomitant]
     Route: 048
  6. CLOPIDOGREL [Concomitant]
     Route: 048
  7. RANITIDINA [Concomitant]
     Route: 048
  8. MESTINON [Concomitant]
     Indication: MYASTHENIA GRAVIS
     Route: 048
  9. DACORTIN [Concomitant]
     Route: 048
  10. IMMUNOGLOBULINES POLYVALENTES [Concomitant]
     Route: 042

REACTIONS (2)
  - Myasthenia gravis crisis [Not Recovered/Not Resolved]
  - Myasthenia gravis [Not Recovered/Not Resolved]
